FAERS Safety Report 9054327 (Version 1)
Quarter: 2013Q1

REPORT INFORMATION
  Report Type: Spontaneous
  Country: US (occurrence: US)
  Receive Date: 20130208
  Receipt Date: 20130208
  Transmission Date: 20140127
  Serious: No
  Sender: FDA-Public Use
  Company Number: US-TEVA-384865USA

PATIENT
  Age: 44 None
  Sex: Female
  Weight: 96.25 kg

DRUGS (6)
  1. COPAXONE [Suspect]
     Indication: MULTIPLE SCLEROSIS
     Dosage: 20 MILLIGRAM DAILY;
     Route: 058
     Dates: start: 2005, end: 20130201
  2. AMANTADINE [Concomitant]
     Dosage: 200 MILLIGRAM DAILY;
     Route: 048
  3. CYMBALTA [Concomitant]
     Dosage: 60 MILLIGRAM DAILY;
     Route: 048
  4. L-THYROXINE [Concomitant]
     Dosage: .125 MILLIGRAM DAILY;
     Route: 048
  5. PROVIGIL [Concomitant]
     Dosage: 400 MILLIGRAM DAILY;
     Route: 048
  6. OXYBUTYNIN [Concomitant]
     Dosage: 20 MILLIGRAM DAILY;
     Route: 048

REACTIONS (5)
  - Immediate post-injection reaction [Recovered/Resolved]
  - Dyspnoea [Recovered/Resolved]
  - Chest pain [Recovered/Resolved]
  - Mobility decreased [Recovered/Resolved]
  - Asthenia [Recovered/Resolved]
